FAERS Safety Report 5398997-9 (Version None)
Quarter: 2007Q3

REPORT INFORMATION
  Report Type: 
  Country: None (occurrence: None)
  Receive Date: 20070727
  Receipt Date: 20070725
  Transmission Date: 20080115
  Serious: Yes (Hospitalization)
  Sender: FDA-Public Use
  Company Number: US-BRISTOL-MYERS SQUIBB COMPANY-13729215

PATIENT
  Age: 74 Year
  Sex: Male
  Weight: 86 kg

DRUGS (10)
  1. COUMADIN [Suspect]
     Indication: CARDIAC DISORDER
     Dosage: DOSING INTERRUPTED FOR PERIODS OF TIMES FROM AUG-2006 TO DEC-2006.
  2. FUROSEMIDE [Concomitant]
  3. METOPROLOL SUCCINATE [Concomitant]
  4. FINASTERIDE [Concomitant]
  5. SIMVASTATIN [Concomitant]
  6. TAMSULOSIN HCL [Concomitant]
  7. ASPIRIN [Concomitant]
  8. POTASSIUM CHLORIDE [Concomitant]
  9. COMBIVENT [Concomitant]
     Route: 055
  10. ASMANEX TWISTHALER [Concomitant]
     Route: 055

REACTIONS (2)
  - BRONCHITIS [None]
  - HAEMOPTYSIS [None]
